FAERS Safety Report 5353056-6 (Version None)
Quarter: 2007Q2

REPORT INFORMATION
  Report Type: 
  Country: None (occurrence: None)
  Receive Date: 20070606
  Receipt Date: 20070525
  Transmission Date: 20071010
  Serious: Yes (Hospitalization)
  Sender: FDA-Public Use
  Company Number: 6033924

PATIENT
  Age: 39 Year
  Sex: Female

DRUGS (6)
  1. LEVOTHYROXINE SODIUM [Suspect]
     Indication: DRUG USE FOR UNKNOWN INDICATION
     Dosage: 50 MCG (50 MCG, 1 D) ORAL
     Route: 048
     Dates: start: 20070402
  2. DAFLON (TABLET) (DIOSMIN) [Concomitant]
  3. EUPANTOL (TABLET) (PANTOPRAZOLE) [Concomitant]
  4. EFFEXOR (TABLET) (VENLAFAXINE) [Concomitant]
  5. TAHOR [Concomitant]
  6. MICROVAL [Concomitant]

REACTIONS (6)
  - BASEDOW'S DISEASE [None]
  - DIARRHOEA [None]
  - DYSPNOEA [None]
  - GRAVITATIONAL OEDEMA [None]
  - HYPERTHYROIDISM [None]
  - OEDEMA PERIPHERAL [None]
